FAERS Safety Report 5227756-2 (Version None)
Quarter: 2007Q1

REPORT INFORMATION
  Report Type: 
  Country: None (occurrence: None)
  Receive Date: 20070202
  Receipt Date: 20070126
  Transmission Date: 20070707
  Serious: Yes (Hospitalization)
  Sender: FDA-Public Use
  Company Number: FR-PFIZER INC-2007007612

PATIENT
  Sex: Male

DRUGS (2)
  1. ZOLOFT [Suspect]
     Indication: DEPRESSION
     Dates: start: 20040701, end: 20061220
  2. BROMAZEPAM [Concomitant]

REACTIONS (1)
  - CARCINOEMBRYONIC ANTIGEN INCREASED [None]
